FAERS Safety Report 5327803-3 (Version None)
Quarter: 2007Q2

REPORT INFORMATION
  Report Type: 
  Country: None (occurrence: None)
  Receive Date: 20070517
  Receipt Date: 20070507
  Transmission Date: 20071010
  Serious: Yes (Hospitalization)
  Sender: FDA-Public Use
  Company Number: IT-JNJFOC-20070501656

PATIENT
  Age: 74 Year
  Sex: Male

DRUGS (1)
  1. TAVANIC [Suspect]
     Indication: ACUTE SINUSITIS
     Route: 065

REACTIONS (2)
  - ABSCESS [None]
  - DRUG INEFFECTIVE [None]
